FAERS Safety Report 5737128-X (Version None)
Quarter: 2008Q2

REPORT INFORMATION
  Report Type: 
  Country: None (occurrence: None)
  Receive Date: 20080513
  Receipt Date: 20080513
  Transmission Date: 20081010
  Serious: Yes (Other)
  Sender: FDA-Public Use
  Company Number: None

PATIENT
  Age: 51 Year
  Sex: Male
  Weight: 95.2554 kg

DRUGS (4)
  1. ALLI [Suspect]
     Indication: WEIGHT DECREASED
     Dosage: PO
     Route: 048
     Dates: start: 20080101, end: 20080118
  2. PAXIL [Concomitant]
  3. XANAX [Concomitant]
  4. PREDNISONE TAB [Concomitant]

REACTIONS (5)
  - ABDOMINAL PAIN UPPER [None]
  - CIRCUMSTANCE OR INFORMATION CAPABLE OF LEADING TO MEDICATION ERROR [None]
  - CROHN'S DISEASE [None]
  - DIARRHOEA [None]
  - HAEMATOCHEZIA [None]
